FAERS Safety Report 6301353-X (Version None)
Quarter: 2009Q3

REPORT INFORMATION
  Report Type: 
  Country: None (occurrence: None)
  Receive Date: 20090807
  Receipt Date: 20070904
  Transmission Date: 20100115
  Serious: No
  Sender: FDA-Public Use
  Company Number: US-BAYER-200912509BCC

PATIENT
  Age: 92 Year
  Sex: Female
  Weight: 64 kg

DRUGS (3)
  1. ALEVE [Suspect]
     Indication: DRUG USE FOR UNKNOWN INDICATION
     Route: 048
     Dates: start: 20030101, end: 20030101
  2. LOTENSEN [Concomitant]
     Route: 065
  3. LOVASTIN [Concomitant]
     Route: 065

REACTIONS (1)
  - URTICARIA [None]
